FAERS Safety Report 5411279-1 (Version None)
Quarter: 2007Q3

REPORT INFORMATION
  Report Type: 
  Country: None (occurrence: None)
  Receive Date: 20070810
  Receipt Date: 20070731
  Transmission Date: 20080115
  Serious: Yes (Hospitalization)
  Sender: FDA-Public Use
  Company Number: US-ROCHE-509605

PATIENT
  Age: 94 Year
  Sex: Female

DRUGS (3)
  1. BUMEX [Suspect]
     Indication: DRUG USE FOR UNKNOWN INDICATION
     Dosage: TWO IN AM AND TWO AT LUNCH.
     Route: 048
  2. UNSPECIFIED MEDICATIONS [Concomitant]
     Dosage: TAKES OTHER MEDICATIONS.
  3. BUMEX [Concomitant]
     Dosage: REPORTED TOOK FOR MANY YEARS.
     Route: 048

REACTIONS (2)
  - DRUG EFFECT DECREASED [None]
  - FLUID RETENTION [None]
